FAERS Safety Report 7788122-9 (Version None)
Quarter: 2011Q3

REPORT INFORMATION
  Report Type: 
  Country: None (occurrence: None)
  Receive Date: 20110927
  Receipt Date: 20110916
  Transmission Date: 20111222
  Serious: Yes (Hospitalization)
  Sender: FDA-Public Use
  Company Number: 2010001971

PATIENT
  Age: 62 Year
  Sex: Male

DRUGS (3)
  1. KETOPROFEN [Concomitant]
  2. TARCEVA [Suspect]
     Indication: LUNG CARCINOMA CELL TYPE UNSPECIFIED STAGE 0
     Dosage: 100 MG, UID/QD, ORAL
     Route: 048
     Dates: start: 20091216
  3. TARCEVA [Suspect]
     Dosage: 100 MG, UID/QD, ORAL
     Route: 048
     Dates: start: 20091212

REACTIONS (5)
  - SURGERY [None]
  - MUSCLE SPASMS [None]
  - DERMATITIS ACNEIFORM [None]
  - DIARRHOEA [None]
  - SKIN HAEMORRHAGE [None]
